FAERS Safety Report 10182187 (Version 2)
Quarter: 2014Q3

REPORT INFORMATION
  Report Type: Report from Study
  Country: US (occurrence: US)
  Receive Date: 20140520
  Receipt Date: 20140703
  Transmission Date: 20150326
  Serious: Yes (Other)
  Sender: FDA-Public Use
  Company Number: US-BIOGENIDEC-2014BI043033

PATIENT
  Age: 64 Year
  Sex: Female

DRUGS (1)
  1. TYSABRI [Suspect]
     Active Substance: NATALIZUMAB
     Indication: MULTIPLE SCLEROSIS
     Route: 042
     Dates: start: 20130925

REACTIONS (5)
  - Platelet count decreased [Recovered/Resolved]
  - Skin lesion [Recovered/Resolved]
  - Basal cell carcinoma [Not Recovered/Not Resolved]
  - Respiratory disorder [Recovered/Resolved]
  - Neck mass [Recovered/Resolved]

NARRATIVE: CASE EVENT DATE: 201404
